FAERS Safety Report 7259596-7 (Version None)
Quarter: 2011Q1

REPORT INFORMATION
  Report Type: 
  Country: None (occurrence: None)
  Receive Date: 20110130
  Receipt Date: 20100913
  Transmission Date: 20110831
  Serious: Yes (Other)
  Sender: FDA-Public Use
  Company Number: PR-ABBOTT-10P-131-0669789-00

PATIENT
  Sex: Female

DRUGS (1)
  1. HUMIRA [Suspect]
     Indication: CROHN'S DISEASE
     Dosage: 1 PEN
     Route: 058
     Dates: start: 20080101, end: 20100901

REACTIONS (4)
  - URINE OUTPUT DECREASED [None]
  - SLEEP DISORDER [None]
  - PSORIASIS [None]
  - SINUSITIS [None]
